FAERS Safety Report 7943105-0 (Version None)
Quarter: 2011Q4

REPORT INFORMATION
  Report Type: 
  Country: None (occurrence: None)
  Receive Date: 20111128
  Receipt Date: 20111114
  Transmission Date: 20120403
  Serious: Yes (Hospitalization)
  Sender: FDA-Public Use
  Company Number: PHHY2011US28461

PATIENT
  Sex: Female

DRUGS (2)
  1. NEORAL [Suspect]
     Indication: RENAL TRANSPLANT
     Dosage: 100 MG, BID
     Route: 048
     Dates: start: 20101027
  2. NEORAL [Suspect]
     Dosage: 50 MG, BID
     Route: 048

REACTIONS (4)
  - DEHYDRATION [None]
  - ANAEMIA [None]
  - KIDNEY TRANSPLANT REJECTION [None]
  - RENAL FAILURE [None]
